FAERS Safety Report 17350364 (Version 2)
Quarter: 2020Q1

REPORT INFORMATION
  Report Type: Spontaneous
  Country: DE (occurrence: DE)
  Receive Date: 20200130
  Receipt Date: 20200310
  Transmission Date: 20200409
  Serious: Yes (Life-Threatening, Hospitalization, Disabling)
  Sender: FDA-Public Use
  Company Number: DE-MYLANLABS-2020M1010558

PATIENT
  Age: 30 Year
  Sex: Female
  Weight: 68 kg

DRUGS (13)
  1. PIPERACILLIN/TAZOBACTAM [Suspect]
     Active Substance: PIPERACILLIN SODIUM\TAZOBACTAM SODIUM
     Indication: ENCEPHALITIS AUTOIMMUNE
     Dosage: UNK(3X4.5)
     Route: 065
     Dates: start: 20170406, end: 20170408
  2. ZINBRYTA [Suspect]
     Active Substance: DACLIZUMAB
     Indication: RELAPSING-REMITTING MULTIPLE SCLEROSIS
     Dosage: 150 MILLIGRAM, MONTHLY
     Route: 050
     Dates: start: 20161015, end: 20170112
  3. CORTISONE [Suspect]
     Active Substance: CORTISONE
     Indication: PRODUCT USED FOR UNKNOWN INDICATION
     Dosage: 2 GRAM, QD
     Route: 042
     Dates: start: 20170324, end: 20170329
  4. PANTOPRAZOL HEXAL [Concomitant]
     Active Substance: PANTOPRAZOLE
     Indication: PROPHYLAXIS
     Dosage: 40 MILLIGRAM, QD
     Route: 050
  5. MIRTAZAPINE. [Concomitant]
     Active Substance: MIRTAZAPINE
     Indication: ADJUSTMENT DISORDER WITH DEPRESSED MOOD
     Dosage: 15 MILLIGRAM
     Route: 050
     Dates: start: 20170320
  6. CORTISONE [Suspect]
     Active Substance: CORTISONE
     Dosage: UNK(HIGH DOSE)
     Route: 065
  7. CEFUROXIME. [Suspect]
     Active Substance: CEFUROXIME
     Indication: ENCEPHALITIS AUTOIMMUNE
     Dosage: UNK
     Route: 042
     Dates: start: 20170322, end: 20170322
  8. CALCIVIT D [Concomitant]
     Indication: PRODUCT USED FOR UNKNOWN INDICATION
     Dosage: 1 DOSAGE FORM, QD(600 MG/400 IU)
     Route: 050
  9. CORTISONE [Suspect]
     Active Substance: CORTISONE
     Indication: DRUG REACTION WITH EOSINOPHILIA AND SYSTEMIC SYMPTOMS
     Dosage: 80 MILLIGRAM
     Route: 065
     Dates: start: 20170407, end: 20170407
  10. VIGANTOLETTEN [Concomitant]
     Active Substance: CHOLECALCIFEROL
     Indication: PRODUCT USED FOR UNKNOWN INDICATION
     Dosage: 1000 INTERNATIONAL UNIT, QD
     Route: 050
  11. PANTOPRAZOL HEXAL [Concomitant]
     Active Substance: PANTOPRAZOLE
     Dosage: 40 MILLIGRAM
     Route: 050
     Dates: start: 20170324
  12. UREA. [Concomitant]
     Active Substance: UREA
     Indication: PRODUCT USED FOR UNKNOWN INDICATION
     Dosage: 5 PERCENT, QD(5CM AT 8AM AND 6PM)
     Route: 050
  13. CLOBEGALEN [Concomitant]
     Indication: PRODUCT USED FOR UNKNOWN INDICATION
     Dosage: 1 DOSAGE FORM, QOD(5CM)
     Route: 050

REACTIONS (9)
  - Demyelination [Not Recovered/Not Resolved]
  - Natural killer cell count decreased [Recovered/Resolved]
  - Encephalitis autoimmune [Not Recovered/Not Resolved]
  - Oral candidiasis [Unknown]
  - Aspartate aminotransferase increased [Recovered/Resolved]
  - Alanine aminotransferase increased [Recovered/Resolved]
  - B-lymphocyte count increased [Recovered/Resolved]
  - Blood lactate dehydrogenase increased [Unknown]
  - Drug reaction with eosinophilia and systemic symptoms [Recovered/Resolved with Sequelae]

NARRATIVE: CASE EVENT DATE: 20170125
